FAERS Safety Report 5929508-4 (Version None)
Quarter: 2008Q4

REPORT INFORMATION
  Report Type: 
  Country: None (occurrence: None)
  Receive Date: 20081024
  Receipt Date: 20081017
  Transmission Date: 20090506
  Serious: Yes (Hospitalization)
  Sender: FDA-Public Use
  Company Number: A0753396A

PATIENT
  Age: 36 Year
  Sex: Male
  Weight: 113.6 kg

DRUGS (1)
  1. AVANDIA [Suspect]
     Dosage: 4MG TWICE PER DAY
     Route: 048
     Dates: start: 20000101

REACTIONS (3)
  - ACUTE CORONARY SYNDROME [None]
  - HEART INJURY [None]
  - MYOCARDIAL INFARCTION [None]
